FAERS Safety Report 8568215-9 (Version None)
Quarter: 2012Q3

REPORT INFORMATION
  Report Type: 
  Country: None (occurrence: None)
  Receive Date: 20120803
  Receipt Date: 20120718
  Transmission Date: 20120928
  Serious: No
  Sender: FDA-Public Use
  Company Number: US-ABBOTT-12P-163-0957414-00

PATIENT
  Sex: Female
  Weight: 83.99 kg

DRUGS (6)
  1. NIASPAN [Suspect]
     Dosage: 1000 MG, AT BED TIME
  2. OTHER UNKNOWN MEDICATIONS [Concomitant]
     Indication: PRODUCT USED FOR UNKNOWN INDICATION
  3. VERAPAMIL [Concomitant]
     Indication: PRODUCT USED FOR UNKNOWN INDICATION
  4. NIASPAN [Suspect]
     Indication: BLOOD TRIGLYCERIDES ABNORMAL
  5. ASPIRIN [Suspect]
     Indication: PRODUCT USED FOR UNKNOWN INDICATION
  6. ASPIRIN [Concomitant]

REACTIONS (9)
  - SKIN BURNING SENSATION [None]
  - HYPOAESTHESIA [None]
  - ANALGESIC ASTHMA SYNDROME [None]
  - PRURITUS [None]
  - ERYTHEMA [None]
  - DYSPHONIA [None]
  - FLUSHING [None]
  - CHILLS [None]
  - HEART RATE INCREASED [None]
